FAERS Safety Report 5096971-3 (Version None)
Quarter: 2006Q3

REPORT INFORMATION
  Report Type: 
  Country: None (occurrence: None)
  Receive Date: 20060906
  Receipt Date: 20060825
  Transmission Date: 20061208
  Serious: Yes (Other)
  Sender: FDA-Public Use
  Company Number: PHHO2006GB14618

PATIENT
  Sex: Female

DRUGS (2)
  1. MISOPROSTOL [Suspect]
     Indication: LABOUR INDUCTION
     Dosage: MATERNAL DOSE 25 UG
     Route: 064
  2. SYNTOCINON [Suspect]
     Dosage: MATERNAL DOSE 10 IU
     Route: 064

REACTIONS (4)
  - DRUG EXPOSURE DURING PREGNANCY [None]
  - FOETAL DISTRESS SYNDROME [None]
  - FOETAL HEART RATE ABNORMAL [None]
  - FOETAL HEART RATE DECELERATION [None]
